FAERS Safety Report 7238896-0 (Version None)
Quarter: 2011Q1

REPORT INFORMATION
  Report Type: 
  Country: None (occurrence: None)
  Receive Date: 20110121
  Receipt Date: 20110118
  Transmission Date: 20110831
  Serious: Yes (Death, Life-Threatening, Other)
  Sender: FDA-Public Use
  Company Number: PHHY2011FR03916

PATIENT
  Sex: Female

DRUGS (14)
  1. TUSSIPAX ORAL SOLUTION [Suspect]
     Dosage: PER OS THREE TIMES PER DAY
     Dates: start: 20101101
  2. PRIMPERAN TAB [Concomitant]
  3. CREON [Concomitant]
     Dosage: 1 DF 5 TIMES PER DAY
     Route: 048
     Dates: start: 20101101
  4. LOVENOX [Suspect]
     Dosage: UNK
     Route: 058
     Dates: start: 20101101
  5. MOPRAL [Concomitant]
     Dosage: 1 DF, UNK
     Route: 048
     Dates: start: 20101101
  6. DOLIPRANE [Concomitant]
     Dosage: 1000 MG, 1 TABLET 4 TIMES A DAY
  7. INNOHEP [Suspect]
     Dosage: UNK
     Route: 058
     Dates: start: 20101101, end: 20101226
  8. FRAXODI [Suspect]
     Dosage: UNK
     Route: 058
     Dates: start: 20101101, end: 20101226
  9. SPASFON [Concomitant]
  10. LEXOMIL [Concomitant]
     Dosage: 0.25 TABLET IN MORNING AND NOON AND 0.75 TABLET IN EVENING
     Route: 048
     Dates: start: 20101101
  11. GLEEVEC [Suspect]
     Dosage: 400 MG, DAILY
     Route: 048
     Dates: start: 20100701
  12. LORMETAZEPAM [Concomitant]
     Dosage: TABLET ONCE PER DAY
     Route: 048
  13. AUGMENTIN '125' [Concomitant]
     Dosage: PER OS TWICE PER DAY
     Dates: start: 20101101
  14. ZOPHREN [Concomitant]

REACTIONS (6)
  - PERITONEAL HAEMORRHAGE [None]
  - THROMBOCYTOPENIA [None]
  - ASTHENIA [None]
  - GASTROINTESTINAL HAEMORRHAGE [None]
  - THROMBOSIS [None]
  - HYPOVOLAEMIC SHOCK [None]
